FAERS Safety Report 24918484 (Version 2)
Quarter: 2025Q2

REPORT INFORMATION
  Report Type: Report from Study
  Country: GB (occurrence: GB)
  Receive Date: 20250203
  Receipt Date: 20250509
  Transmission Date: 20250716
  Serious: Yes (Other)
  Sender: AMGEN
  Company Number: GB-002147023-NVSC2025GB016845

PATIENT
  Sex: Female

DRUGS (1)
  1. AIMOVIG [Suspect]
     Active Substance: ERENUMAB-AOOE
     Indication: Migraine
     Route: 058
     Dates: start: 202501

REACTIONS (7)
  - Syncope [Unknown]
  - Cerebral palsy [Unknown]
  - Vision blurred [Unknown]
  - Dizziness [Unknown]
  - Hypotension [Unknown]
  - Pulse abnormal [Unknown]
  - Muscle spasms [Unknown]
